FAERS Safety Report 8922051 (Version 1)
Quarter: 2012Q4

REPORT INFORMATION
  Report Type: 
  Country: BR (occurrence: BR)
  Receive Date: 20121123
  Receipt Date: 20121123
  Transmission Date: 20130627
  Serious: Yes (Death)
  Sender: FDA-Public Use
  Company Number: PHHY2012BR106339

PATIENT
  Age: 84 Year
  Sex: Female

DRUGS (4)
  1. EXELON [Suspect]
     Indication: DEMENTIA ALZHEIMER^S TYPE
     Dosage: 1.5 mg at lunch
     Route: 048
  2. EXELON [Suspect]
     Dosage: 3 mg, BID (at lunch and bed time)
     Route: 048
  3. EXELON [Suspect]
     Dosage: 4.5 mg, BID (at lunch and bed time)
     Route: 048
  4. EXELON [Suspect]
     Dosage: 6 mg, BID (at lunch and bed time)
     Route: 048

REACTIONS (3)
  - Gastrointestinal carcinoma [Fatal]
  - Abdominal distension [Fatal]
  - Constipation [Fatal]
